FAERS Safety Report 5194806-1 (Version None)
Quarter: 2006Q4

REPORT INFORMATION
  Report Type: 
  Country: None (occurrence: None)
  Receive Date: 20061229
  Receipt Date: 20061219
  Transmission Date: 20070319
  Serious: Yes (Hospitalization)
  Sender: FDA-Public Use
  Company Number: JP-ROCHE-476230

PATIENT
  Age: 61 Year
  Sex: Male

DRUGS (3)
  1. ROCEPHIN [Suspect]
     Indication: BRAIN ABSCESS
     Route: 041
     Dates: start: 20060814, end: 20060906
  2. EXCEGRAN [Suspect]
     Indication: DRUG USE FOR UNKNOWN INDICATION
     Dosage: FORM REPORTED AS ORAL FORMULATION (NOT OTHERWISE SPECIFIED).
     Route: 048
     Dates: start: 20060812, end: 20060911
  3. MEROPENEM TRIHYDRATE [Concomitant]
     Route: 041
     Dates: start: 20060814

REACTIONS (1)
  - GRANULOCYTOPENIA [None]
